FAERS Safety Report 6922883-3 (Version None)
Quarter: 2010Q3

REPORT INFORMATION
  Report Type: 
  Country: None (occurrence: None)
  Receive Date: 20100811
  Receipt Date: 20100805
  Transmission Date: 20110219
  Serious: Yes (Other)
  Sender: FDA-Public Use
  Company Number: WAES 1008USA00559

PATIENT
  Age: 88 Year
  Sex: Female

DRUGS (12)
  1. VYTORIN [Suspect]
     Dosage: PO
     Route: 048
  2. BLINDED THERAPY UNK [Suspect]
  3. HYZAAR [Concomitant]
  4. ASCORBIC ACID [Concomitant]
  5. ASPIRIN [Concomitant]
  6. ATENOLOL [Concomitant]
  7. CALCIUM (UNSPECIFIED) [Concomitant]
  8. CYANOCOBALAMIN [Concomitant]
  9. FEXOFENADINE HCL [Concomitant]
  10. FOLIC ACID [Concomitant]
  11. MELOXICAM [Concomitant]
  12. NITROGLYCERIN [Concomitant]

REACTIONS (3)
  - CHOLELITHIASIS [None]
  - GALLBLADDER CANCER [None]
  - METASTASES TO LIVER [None]
